FAERS Safety Report 8380136-3 (Version None)
Quarter: 2012Q2

REPORT INFORMATION
  Report Type: 
  Country: None (occurrence: None)
  Receive Date: 20120523
  Receipt Date: 20120517
  Transmission Date: 20120825
  Serious: Yes (Hospitalization)
  Sender: FDA-Public Use
  Company Number: US-ALEXION PHARMACEUTICALS INC.-A201200985

PATIENT
  Sex: Female

DRUGS (2)
  1. SOLIRIS [Suspect]
     Indication: PAROXYSMAL NOCTURNAL HAEMOGLOBINURIA
     Dosage: UNK
     Route: 042
  2. PNEUMOVAX 23 [Suspect]
     Indication: IMMUNISATION
     Route: 065

REACTIONS (4)
  - LOBAR PNEUMONIA [None]
  - VACCINATION SITE INFECTION [None]
  - PNEUMONIA [None]
  - GASTROINTESTINAL OBSTRUCTION [None]
